FAERS Safety Report 6104075-3 (Version None)
Quarter: 2009Q1

REPORT INFORMATION
  Report Type: 
  Country: None (occurrence: None)
  Receive Date: 20090227
  Receipt Date: 20080305
  Transmission Date: 20090719
  Serious: Yes (Other)
  Sender: FDA-Public Use
  Company Number: 552251

PATIENT
  Age: 28 Year
  Sex: Male
  Weight: 74.8 kg

DRUGS (2)
  1. ACCUTANE [Suspect]
     Indication: ACNE
     Dates: start: 19980422, end: 19980926
  2. DIFFERIN GEL (ADAPALENE) [Concomitant]

REACTIONS (8)
  - ANAL FISSURE [None]
  - BACK PAIN [None]
  - CROHN'S DISEASE [None]
  - GASTROOESOPHAGEAL REFLUX DISEASE [None]
  - INFLAMMATORY BOWEL DISEASE [None]
  - LIP DRY [None]
  - NASAL DRYNESS [None]
  - RASH [None]
